FAERS Safety Report 19055513 (Version 3)
Quarter: 2021Q2

REPORT INFORMATION
  Report Type: Spontaneous
  Country: IT (occurrence: IT)
  Receive Date: 20210324
  Receipt Date: 20210416
  Transmission Date: 20210717
  Serious: Yes (Other)
  Sender: FDA-Public Use
  Company Number: IT-AMGEN-ITASP2021042846

PATIENT

DRUGS (5)
  1. CICLOSPORIN [Concomitant]
     Active Substance: CYCLOSPORINE
     Dosage: 3.5?5MG/KG/DAY
  2. ADALIMUMAB [Suspect]
     Active Substance: ADALIMUMAB
     Indication: PSORIASIS
     Dosage: UNK
     Route: 065
  3. ACITRETIN. [Concomitant]
     Active Substance: ACITRETIN
     Dosage: UNK, QD
  4. ETANERCEPT [Suspect]
     Active Substance: ETANERCEPT
     Indication: PSORIASIS
     Dosage: UNK
     Route: 065
  5. METHOTREXATE. [Concomitant]
     Active Substance: METHOTREXATE
     Dosage: UNK, QWK

REACTIONS (16)
  - Renal colic [Unknown]
  - Calculus urinary [Unknown]
  - Monoclonal gammopathy [Unknown]
  - Bladder prolapse [Unknown]
  - Herpes zoster [Unknown]
  - Laryngeal cancer [Unknown]
  - Skin cancer [Unknown]
  - Cataract [Unknown]
  - Respiratory tract infection [Unknown]
  - Cholelithiasis [Unknown]
  - Urinary tract infection [Unknown]
  - Erysipelas [Unknown]
  - Ischaemic cardiomyopathy [Unknown]
  - Transient ischaemic attack [Unknown]
  - Mixed anxiety and depressive disorder [Unknown]
  - Mucocutaneous candidiasis [Unknown]
